FAERS Safety Report 17783683 (Version 1)
Quarter: 2020Q2

REPORT INFORMATION
  Report Type: Spontaneous
  Country: LT (occurrence: LT)
  Receive Date: 20200514
  Receipt Date: 20200514
  Transmission Date: 20200714
  Serious: Yes (Other)
  Sender: FDA-Public Use
  Company Number: LT-ACCORD-181365

PATIENT
  Age: 35 Year
  Sex: Female
  Weight: 130 kg

DRUGS (9)
  1. DEPAKINE CHRONO 500 [Concomitant]
     Active Substance: VALPROATE SODIUM
     Dosage: 2.5 TABLET PER DAY
     Route: 048
     Dates: start: 1991
  2. LEVETIRACETAM ACCORD [Suspect]
     Active Substance: LEVETIRACETAM
     Indication: EPILEPSY
     Dosage: 1000 MG 5 TIMES PER DAY
     Route: 048
     Dates: start: 20200224
  3. RELANIUM [Concomitant]
     Dosage: 2 AMPOULES DURING SEIZURE
     Route: 065
     Dates: start: 1991
  4. LAMICTAL [Concomitant]
     Active Substance: LAMOTRIGINE
     Dosage: 200 MG 3 TIMES PER DAY, STRENGTH: 200 MG
     Route: 065
     Dates: start: 1998
  5. TOPAMAX [Concomitant]
     Active Substance: TOPIRAMATE
     Dosage: 25 MG IN THE MORNING
     Route: 065
     Dates: start: 2010
  6. PARKOPAN [Concomitant]
     Active Substance: TRIHEXYPHENIDYL HYDROCHLORIDE
     Dosage: 2 MG 2 TIMES PER DAY
     Route: 065
     Dates: start: 2018
  7. CARBALEX [Concomitant]
     Dosage: 3 TIMES PER DAY
     Route: 065
     Dates: start: 2015
  8. CLONAZEPAM. [Concomitant]
     Active Substance: CLONAZEPAM
     Dosage: 3 TIMES PER DAY
     Route: 065
     Dates: start: 2000
  9. BURONIL [Concomitant]
     Active Substance: MELPERONE HYDROCHLORIDE
     Dosage: 1 TABLET 4 TIMES PER DAY
     Route: 048
     Dates: start: 2010

REACTIONS (4)
  - Product substitution issue [Unknown]
  - Drug ineffective [Unknown]
  - Epilepsy [Not Recovered/Not Resolved]
  - Condition aggravated [Unknown]

NARRATIVE: CASE EVENT DATE: 20200226
